FAERS Safety Report 12918796 (Version 1)
Quarter: 2016Q4

REPORT INFORMATION
  Report Type: Spontaneous
  Country: DE (occurrence: DE)
  Receive Date: 20161107
  Receipt Date: 20161107
  Transmission Date: 20170207
  Serious: Yes (Hospitalization)
  Sender: FDA-Public Use
  Company Number: DE-NODEN PHARMA DAC-NOD-2016-000026

PATIENT
  Sex: Male

DRUGS (11)
  1. BETA BLOCKING AGENTS [Concomitant]
     Active Substance: UNSPECIFIED INGREDIENT
     Indication: PRODUCT USED FOR UNKNOWN INDICATION
     Dosage: UNK
     Route: 065
  2. RASILEZ [Suspect]
     Active Substance: ALISKIREN
     Indication: HYPERTENSION
     Dosage: 150 MG, QD
     Route: 048
     Dates: start: 2008
  3. DILATREND [Suspect]
     Active Substance: CARVEDILOL
     Indication: TRANSIENT ISCHAEMIC ATTACK
  4. DILATREND [Suspect]
     Active Substance: CARVEDILOL
     Indication: HEART RATE
  5. SORTIS [Concomitant]
     Active Substance: ATORVASTATIN
     Indication: PRODUCT USED FOR UNKNOWN INDICATION
     Dosage: UNK
     Route: 065
  6. SYMBICORT [Concomitant]
     Active Substance: BUDESONIDE\FORMOTEROL FUMARATE DIHYDRATE
     Indication: PRODUCT USED FOR UNKNOWN INDICATION
     Dosage: UNK
     Route: 065
  7. RASILEZ [Suspect]
     Active Substance: ALISKIREN
     Indication: ARTERIOSCLEROSIS CORONARY ARTERY
     Dosage: 150 MG, BID
     Route: 048
     Dates: start: 2015
  8. RASILEZ [Suspect]
     Active Substance: ALISKIREN
     Indication: TRANSIENT ISCHAEMIC ATTACK
  9. DILATREND [Suspect]
     Active Substance: CARVEDILOL
     Indication: HYPERTENSION
     Dosage: 0.5 DF, BID
     Route: 048
  10. AMLODIPINE [Concomitant]
     Active Substance: AMLODIPINE BESYLATE
     Indication: PRODUCT USED FOR UNKNOWN INDICATION
     Dosage: UNK
     Route: 065
     Dates: start: 201607
  11. DILATREND [Suspect]
     Active Substance: CARVEDILOL
     Indication: ARTERIOSCLEROSIS CORONARY ARTERY

REACTIONS (4)
  - Chest pain [Recovered/Resolved]
  - Nocturnal dyspnoea [Recovered/Resolved]
  - Dyspnoea [Recovered/Resolved]
  - Incorrect dose administered [Not Recovered/Not Resolved]

NARRATIVE: CASE EVENT DATE: 2015
